FAERS Safety Report 22196156 (Version 1)
Quarter: 2023Q2

REPORT INFORMATION
  Report Type: Spontaneous
  Country: CN (occurrence: CN)
  Receive Date: 20230411
  Receipt Date: 20230411
  Transmission Date: 20230722
  Serious: Yes (Death, Other)
  Sender: FDA-Public Use
  Company Number: CN-STRIDES ARCOLAB LIMITED-2023SP005033

PATIENT
  Age: 23 Year
  Sex: Female

DRUGS (9)
  1. DEXAMETHASONE [Suspect]
     Active Substance: DEXAMETHASONE
     Indication: Maternal therapy to enhance foetal lung maturity
     Dosage: UNK
     Route: 065
  2. DEXAMETHASONE [Suspect]
     Active Substance: DEXAMETHASONE
     Dosage: UNK; DEXAMETHASONE SODIUM PHOSPHATE
     Route: 030
  3. METOCLOPRAMIDE [Suspect]
     Active Substance: METOCLOPRAMIDE
     Indication: Vomiting
     Dosage: UNK
     Route: 065
  4. URSODIOL [Suspect]
     Active Substance: URSODIOL
     Indication: Cholecystitis acute
     Dosage: UNK
     Route: 065
     Dates: start: 20210117
  5. GLUTATHIONE [Suspect]
     Active Substance: GLUTATHIONE
     Indication: Hepatic function abnormal
     Dosage: UNK
     Route: 065
  6. NIFEDIPINE [Suspect]
     Active Substance: NIFEDIPINE
     Indication: Uterine atony
     Dosage: UNK
     Route: 065
  7. MAGNESIUM SULFATE [Suspect]
     Active Substance: MAGNESIUM SULFATE
     Indication: Nervous system disorder prophylaxis
     Dosage: UNK
     Route: 065
  8. MEPERIDINE HYDROCHLORIDE [Suspect]
     Active Substance: MEPERIDINE HYDROCHLORIDE
     Indication: Analgesic therapy
     Dosage: UNK
     Route: 065
  9. SUCRALFATE [Suspect]
     Active Substance: SUCRALFATE
     Indication: Product used for unknown indication
     Dosage: UNK
     Route: 065
     Dates: start: 20210117

REACTIONS (4)
  - Death [Fatal]
  - Premature delivery [Unknown]
  - Maternal exposure during pregnancy [Unknown]
  - Off label use [Unknown]

NARRATIVE: CASE EVENT DATE: 20210120
